FAERS Safety Report 8491717-0 (Version None)
Quarter: 2012Q3

REPORT INFORMATION
  Report Type: 
  Country: None (occurrence: None)
  Receive Date: 20120706
  Receipt Date: 20120703
  Transmission Date: 20120928
  Serious: Yes (Life-Threatening, Disabling)
  Sender: FDA-Public Use
  Company Number: IT-PFIZER INC-2012160032

PATIENT

DRUGS (1)
  1. SUTENT [Suspect]
     Indication: RENAL CELL CARCINOMA
     Dosage: 50 MG, 1X/DAY
     Route: 048
     Dates: start: 20120510

REACTIONS (7)
  - ASTHENIA [None]
  - NEUTROPENIA [None]
  - LEUKOPENIA [None]
  - THROMBOCYTOPENIA [None]
  - NAUSEA [None]
  - VOMITING [None]
  - DIARRHOEA [None]
